FAERS Safety Report 7683066-5 (Version None)
Quarter: 2011Q3

REPORT INFORMATION
  Report Type: 
  Country: None (occurrence: None)
  Receive Date: 20110815
  Receipt Date: 20110804
  Transmission Date: 20111222
  Serious: Yes (Hospitalization)
  Sender: FDA-Public Use
  Company Number: US-VERTEX PHARMACEUTICALS INC.-AE-2011-000277

PATIENT
  Sex: Male
  Weight: 98.972 kg

DRUGS (7)
  1. VX-950 [Suspect]
     Indication: HEPATITIS C
     Route: 048
     Dates: start: 20110322
  2. COPEGUS [Suspect]
     Indication: HEPATITIS C
     Route: 048
     Dates: start: 20110322
  3. HYDROCODONE [Concomitant]
     Indication: BACK PAIN
     Route: 048
  4. AMLODIPINE [Concomitant]
     Indication: HYPERTENSION
  5. NORVASC [Concomitant]
     Indication: HYPERTENSION
     Route: 048
  6. PEGASYS [Suspect]
     Indication: HEPATITIS C
     Route: 058
     Dates: start: 20110322
  7. CELEXA [Concomitant]
     Indication: DEPRESSION

REACTIONS (2)
  - PANCYTOPENIA [None]
  - FOOT FRACTURE [None]
